FAERS Safety Report 8310327-9 (Version None)
Quarter: 2012Q2

REPORT INFORMATION
  Report Type: 
  Country: None (occurrence: None)
  Receive Date: 20120425
  Receipt Date: 20120420
  Transmission Date: 20120825
  Serious: Yes (Other)
  Sender: FDA-Public Use
  Company Number: PHHY2011CA47268

PATIENT
  Sex: Female

DRUGS (2)
  1. ZOLEDRONOC ACID [Suspect]
     Indication: OSTEOPOROSIS
     Dosage: 5 MG/100ML
     Route: 042
     Dates: start: 20100623
  2. ZOLEDRONOC ACID [Suspect]
     Dosage: 5 MG/100 ML
     Route: 042
     Dates: start: 20110608

REACTIONS (7)
  - ARTHRALGIA [None]
  - BACK PAIN [None]
  - PAIN IN EXTREMITY [None]
  - BRONCHITIS [None]
  - SPINAL CORD HERNIATION [None]
  - DYSSTASIA [None]
  - DRUG INEFFECTIVE [None]
